FAERS Safety Report 9388468 (Version 2)
Quarter: 2014Q3

REPORT INFORMATION
  Report Type: Spontaneous
  Country: US (occurrence: US)
  Receive Date: 20130708
  Receipt Date: 20140703
  Transmission Date: 20150326
  Serious: Yes (Death)
  Sender: FDA-Public Use
  Company Number: US-GLAXOSMITHKLINE-A1030894A

PATIENT
  Age: 67 Year
  Sex: Female
  Weight: 87.3 kg

DRUGS (1)
  1. AVANDIA [Suspect]
     Active Substance: ROSIGLITAZONE MALEATE
     Indication: DIABETES MELLITUS
     Route: 048

REACTIONS (5)
  - Cardiac assistance device user [Unknown]
  - Cardiac failure congestive [Fatal]
  - Respiratory failure [Unknown]
  - Atrial fibrillation [Unknown]
  - Intraductal proliferative breast lesion [Unknown]
